FAERS Safety Report 7983305-7 (Version None)
Quarter: 2011Q4

REPORT INFORMATION
  Report Type: 
  Country: None (occurrence: None)
  Receive Date: 20111215
  Receipt Date: 20111209
  Transmission Date: 20120403
  Serious: Yes (Other)
  Sender: FDA-Public Use
  Company Number: GB-ABBOTT-11P-167-0836049-00

PATIENT
  Sex: Female
  Weight: 60 kg

DRUGS (6)
  1. HUMIRA [Suspect]
     Indication: PRODUCT USED FOR UNKNOWN INDICATION
     Dosage: INDUCTION
  2. HUMIRA [Suspect]
  3. IRON [Suspect]
     Route: 042
  4. HUMIRA [Suspect]
     Dosage: INDUCTION
  5. HUMIRA [Suspect]
  6. IRON DEXTRAN [Suspect]
     Indication: PRODUCT USED FOR UNKNOWN INDICATION
     Route: 042

REACTIONS (4)
  - PRURITUS ALLERGIC [None]
  - MINERAL SUPPLEMENTATION [None]
  - THERAPEUTIC RESPONSE DECREASED [None]
  - ALLERGIC RESPIRATORY SYMPTOM [None]
